FAERS Safety Report 11720924 (Version 1)
Quarter: 2015Q4

REPORT INFORMATION
  Report Type: Spontaneous
  Country: US (occurrence: US)
  Receive Date: 20151110
  Receipt Date: 20151110
  Transmission Date: 20160304
  Serious: No
  Sender: FDA-Public Use
  Company Number: US-SA-2015SA142322

PATIENT
  Age: 63 Year
  Sex: Female
  Weight: 68.03 kg

DRUGS (10)
  1. ALIROCUMAB PREFILLED PEN [Concomitant]
     Indication: BLOOD CHOLESTEROL INCREASED
     Dates: start: 20150805
  2. RALOXIFENE HYDROCHLORIDE/RALOXIFENE HYDROCHLORIDE/RALOXIFENE HYDROCHLORIDE [Concomitant]
     Indication: BONE DISORDER
  3. COENZYME Q10 [Concomitant]
     Active Substance: UBIDECARENONE
  4. ALIROCUMAB PREFILLED PEN [Concomitant]
     Indication: BLOOD CHOLESTEROL INCREASED
     Dates: start: 20150805
  5. PRALUENT [Suspect]
     Active Substance: ALIROCUMAB
     Indication: BLOOD CHOLESTEROL INCREASED
     Dosage: 1 INJECTION QOW
     Route: 065
     Dates: start: 20150805
  6. VITAMIN D3 [Concomitant]
     Active Substance: CHOLECALCIFEROL
  7. LEVOTHYROXINE. [Concomitant]
     Active Substance: LEVOTHYROXINE
     Indication: THYROID DISORDER
  8. PRALUENT [Suspect]
     Active Substance: ALIROCUMAB
     Indication: BLOOD CHOLESTEROL INCREASED
     Dosage: 1 INJECTION QOW
     Route: 065
     Dates: start: 20150805
  9. ASPIRIN. [Concomitant]
     Active Substance: ASPIRIN
     Indication: CARDIAC DISORDER
  10. CALCIUM [Concomitant]
     Active Substance: CALCIUM

REACTIONS (3)
  - Musculoskeletal stiffness [Recovered/Resolved]
  - Trismus [Recovered/Resolved]
  - Headache [Recovered/Resolved]

NARRATIVE: CASE EVENT DATE: 2014
